FAERS Safety Report 13453180 (Version 1)
Quarter: 2017Q2

REPORT INFORMATION
  Report Type: Spontaneous
  Country: DE (occurrence: DE)
  Receive Date: 20170418
  Receipt Date: 20170418
  Transmission Date: 20170830
  Serious: Yes (Other)
  Sender: FDA-Public Use
  Company Number: DE-TEVA-759045GER

PATIENT
  Sex: Male

DRUGS (2)
  1. QUETIAPIN-RATIOPHARM 150 MG FILMTABLETTEN [Suspect]
     Active Substance: QUETIAPINE
     Dosage: INTAKE FOR A LONG TIME
  2. MIRTAZAPIN 45 MG FILMTABLETTEN [Interacting]
     Active Substance: MIRTAZAPINE
     Dosage: INTAKE FOR A LONG TIME

REACTIONS (3)
  - Drug interaction [Unknown]
  - Electrocardiogram abnormal [Not Recovered/Not Resolved]
  - Angina pectoris [Not Recovered/Not Resolved]

NARRATIVE: CASE EVENT DATE: 2017
